FAERS Safety Report 20344135 (Version 1)
Quarter: 2022Q1

REPORT INFORMATION
  Report Type: Spontaneous
  Country: CA (occurrence: CA)
  Receive Date: 20220118
  Receipt Date: 20220118
  Transmission Date: 20220423
  Serious: Yes (Hospitalization)
  Sender: FDA-Public Use
  Company Number: CA-TEVA-2022-CA-1998513

PATIENT
  Age: 65 Year
  Sex: Female
  Weight: 50 kg

DRUGS (19)
  1. CARBOPLATIN [Suspect]
     Active Substance: CARBOPLATIN
     Indication: Mesothelioma
     Route: 065
  2. PEMETREXED DISODIUM [Suspect]
     Active Substance: PEMETREXED DISODIUM
     Indication: Mesothelioma
     Route: 041
  3. NAPROXEN [Suspect]
     Active Substance: NAPROXEN
     Indication: Pain
     Dosage: 1000 MILLIGRAM DAILY;
     Route: 048
  4. ACETAMINOPHEN [Concomitant]
     Active Substance: ACETAMINOPHEN
  5. ALENDRONATE [Concomitant]
     Active Substance: ALENDRONATE SODIUM
  6. ATORVASTATIN [Concomitant]
     Active Substance: ATORVASTATIN
     Route: 065
  7. CALCIUM CITRATE [Concomitant]
     Active Substance: CALCIUM CITRATE
  8. DEXAMETHASONE [Concomitant]
     Active Substance: DEXAMETHASONE
  9. FOLIC ACID [Concomitant]
     Active Substance: FOLIC ACID
  10. HYDROMORPHONE [Concomitant]
     Active Substance: HYDROMORPHONE
  11. HYDROMORPHONE [Concomitant]
     Active Substance: HYDROMORPHONE
  12. POLYETHYLENE GLYCOL 3350 [Concomitant]
     Active Substance: POLYETHYLENE GLYCOL 3350
  13. MESALAMINE [Concomitant]
     Active Substance: MESALAMINE
  14. PREGABALIN [Concomitant]
     Active Substance: PREGABALIN
  15. PROCHLORPERAZINE [Concomitant]
     Active Substance: PROCHLORPERAZINE
  16. RAMIPRIL [Concomitant]
     Active Substance: RAMIPRIL
     Route: 065
  17. SENNOSIDES [Concomitant]
     Active Substance: SENNOSIDES
  18. VITAMIN B12 [Concomitant]
     Active Substance: CYANOCOBALAMIN
  19. VITAMIN D [Concomitant]
     Active Substance: VITAMIN D NOS

REACTIONS (9)
  - Acute kidney injury [Not Recovered/Not Resolved]
  - Asthenia [Not Recovered/Not Resolved]
  - Chromaturia [Not Recovered/Not Resolved]
  - Confusional state [Not Recovered/Not Resolved]
  - Dizziness [Not Recovered/Not Resolved]
  - Fatigue [Not Recovered/Not Resolved]
  - Hypotension [Not Recovered/Not Resolved]
  - Muscle spasms [Not Recovered/Not Resolved]
  - Pancytopenia [Not Recovered/Not Resolved]
